FAERS Safety Report 5585583-0 (Version None)
Quarter: 2008Q1

REPORT INFORMATION
  Report Type: 
  Country: None (occurrence: None)
  Receive Date: 20080109
  Receipt Date: 20080103
  Transmission Date: 20080703
  Serious: Yes (Other)
  Sender: FDA-Public Use
  Company Number: B0496098A

PATIENT
  Age: 63 Year
  Sex: Female
  Weight: 75.7 kg

DRUGS (6)
  1. VENTOLIN [Suspect]
     Indication: EMPHYSEMA
     Dosage: 100MCG AS REQUIRED
     Route: 055
     Dates: start: 20010101
  2. SERETIDE [Suspect]
     Indication: EMPHYSEMA
     Route: 055
  3. BECOTIDE [Suspect]
     Indication: EMPHYSEMA
     Route: 055
  4. NEBULIZER [Concomitant]
  5. TRAMADOL HCL [Concomitant]
     Dates: start: 20070920
  6. ERYTHROMYCIN [Concomitant]
     Dates: start: 19970522

REACTIONS (4)
  - COUGH [None]
  - DRY THROAT [None]
  - ORAL CANDIDIASIS [None]
  - STRESS URINARY INCONTINENCE [None]
